FAERS Safety Report 4695121-2 (Version None)
Quarter: 2005Q2

REPORT INFORMATION
  Report Type: 
  Country: None (occurrence: None)
  Receive Date: 20050620
  Receipt Date: 20050318
  Transmission Date: 20051028
  Serious: Yes (Death, Hospitalization)
  Sender: FDA-Public Use
  Company Number: US-MERCK-0503USA03804

PATIENT
  Age: 57 Year
  Sex: Female
  Weight: 77 kg

DRUGS (3)
  1. VIOXX [Suspect]
     Indication: BACK PAIN
     Route: 048
     Dates: start: 19990101, end: 20030222
  2. VIOXX [Suspect]
     Indication: FIBROMYALGIA
     Route: 048
     Dates: start: 19990101, end: 20030222
  3. ASPIRIN [Concomitant]
     Route: 065

REACTIONS (4)
  - ATRIAL SEPTAL DEFECT [None]
  - GOITRE [None]
  - HAEMORRHAGIC STROKE [None]
  - NEPHROLITHIASIS [None]
